FAERS Safety Report 13158807 (Version 1)
Quarter: 2017Q1

REPORT INFORMATION
  Report Type: Spontaneous
  Country: GB (occurrence: GB)
  Receive Date: 20170127
  Receipt Date: 20170127
  Transmission Date: 20170428
  Serious: Yes (Death)
  Sender: FDA-Public Use
  Company Number: GB-TEVA-733214ACC

PATIENT
  Sex: Male

DRUGS (2)
  1. PREDNISOLONE 5MG [Suspect]
     Active Substance: PREDNISOLONE
  2. MYFENAX [Suspect]
     Active Substance: MYCOPHENOLATE MOFETIL

REACTIONS (1)
  - Death [Fatal]
